FAERS Safety Report 15452865 (Version 1)
Quarter: 2018Q4

REPORT INFORMATION
  Report Type: Spontaneous
  Country: US (occurrence: US)
  Receive Date: 20181001
  Receipt Date: 20181001
  Transmission Date: 20190204
  Serious: Yes (Hospitalization)
  Sender: FDA-Public Use
  Company Number: US-PFIZER INC-2016435542

PATIENT
  Age: 62 Year
  Sex: Female
  Weight: 99.79 kg

DRUGS (21)
  1. LYRICA [Suspect]
     Active Substance: PREGABALIN
     Indication: BACK PAIN
  2. GLIMEPIRIDE. [Concomitant]
     Active Substance: GLIMEPIRIDE
     Dosage: 4 MG, 1X/DAY (1 TAB DAILY; 45 DAY SUPPLY)
     Dates: start: 20160602
  3. PIROXICAM. [Concomitant]
     Active Substance: PIROXICAM
     Dosage: 20 MG, 1X/DAY (90 DAY SUPPLY)
     Dates: start: 20160614
  4. METFORMIN HCL [Concomitant]
     Active Substance: METFORMIN HYDROCHLORIDE
     Dosage: 1000 MG, 2X/DAY (30 DAY SUPPLY)
     Dates: start: 20160625
  5. LASIX [Concomitant]
     Active Substance: FUROSEMIDE
     Dosage: UNK (30 DAY SUPPLY)
     Dates: start: 20160614
  6. LYRICA [Suspect]
     Active Substance: PREGABALIN
     Indication: SPINAL COLUMN STENOSIS
     Dosage: 75 MG, 2X/DAY (TAKE 1 CAPSULE(S) TWICE A DAY)
     Route: 048
     Dates: start: 201601
  7. LATANOPROST. [Concomitant]
     Active Substance: LATANOPROST
     Dosage: UNK(25 DAY SUPPLY)
     Route: 047
     Dates: start: 20160614
  8. GABAPENTIN. [Concomitant]
     Active Substance: GABAPENTIN
     Dosage: 300 MG, UNK (10 DAY SUPPLY)
     Dates: start: 20160613
  9. LYRICA [Suspect]
     Active Substance: PREGABALIN
     Indication: NEURALGIA
  10. DESLORATADINE. [Concomitant]
     Active Substance: DESLORATADINE
     Dosage: 5 MG, 1X/DAY
  11. GABAPENTIN. [Concomitant]
     Active Substance: GABAPENTIN
     Dosage: 300 MG, UNK(30 DAY SUPPLY)
     Dates: start: 20160620
  12. FLUTICASONE PROPIONATE. [Concomitant]
     Active Substance: FLUTICASONE PROPIONATE
     Dosage: UNK (30 DAY SUPPLY) (SPRAY)
     Dates: start: 20160614
  13. LOSARTAN POTASSIUM. [Concomitant]
     Active Substance: LOSARTAN POTASSIUM
     Dosage: 100 MG, 1X/DAY (90 DAY SUPPLY)
     Dates: start: 20160603
  14. VICTOZA [Concomitant]
     Active Substance: LIRAGLUTIDE
     Dosage: UNK, DAILY (2-PAK 18 MG/3 ML PEN; 30 DAY SUPPLY) (3-PAK 18 MG/3 ML PEN; 30 DAY SUPPLY)
  15. NORCO [Concomitant]
     Active Substance: ACETAMINOPHEN\HYDROCODONE BITARTRATE
     Indication: PAIN
     Dosage: UNK (HYDROCODONE BITARTRATE: 5 MG-PARACETAMOL: 325MG TABLET EVERY 6-8 HOURS)
     Dates: start: 20180808
  16. LYRICA [Suspect]
     Active Substance: PREGABALIN
     Indication: DIABETIC NEUROPATHY
  17. ATORVASTATIN [Concomitant]
     Active Substance: ATORVASTATIN
     Dosage: 20 MG, 1X/DAY (30 DAY SUPPLY)
     Dates: start: 20160620
  18. OMEPRAZOLE. [Concomitant]
     Active Substance: OMEPRAZOLE
     Dosage: 20 MG, 1X/DAY (30 DAY SUPPLY)
     Dates: start: 20160602
  19. VICTOZA [Concomitant]
     Active Substance: LIRAGLUTIDE
     Dosage: UNK, 1X/DAY (.06/1X/DAY)
  20. TRAMADOL HCL [Concomitant]
     Active Substance: TRAMADOL HYDROCHLORIDE
     Dosage: UNK (8 DAY SUPPLY)
     Dates: start: 20160621
  21. AMLODIPINE BESILATE [Concomitant]
     Active Substance: AMLODIPINE BESYLATE
     Dosage: 10 MG, 1X/DAY (90 DAY SUPPLY)
     Dates: start: 20160615

REACTIONS (9)
  - Fatigue [Recovering/Resolving]
  - Nausea [Recovering/Resolving]
  - Hypoaesthesia [Recovering/Resolving]
  - Discomfort [Recovering/Resolving]
  - Feeling abnormal [Recovered/Resolved]
  - Withdrawal syndrome [Unknown]
  - Anxiety [Recovering/Resolving]
  - Hunger [Recovering/Resolving]
  - Temperature intolerance [Recovering/Resolving]

NARRATIVE: CASE EVENT DATE: 20180922
